FAERS Safety Report 16475821 (Version 1)
Quarter: 2019Q2

REPORT INFORMATION
  Report Type: Spontaneous
  Country: JP (occurrence: JP)
  Receive Date: 20190625
  Receipt Date: 20190625
  Transmission Date: 20190711
  Serious: Yes (Other)
  Sender: FDA-Public Use
  Company Number: JP-SA-2019SA164511

PATIENT
  Age: 40 Year
  Sex: Female

DRUGS (21)
  1. BENLYSTA [Suspect]
     Active Substance: BELIMUMAB
     Dosage: UNK, QW
     Route: 058
     Dates: start: 20181120, end: 20181120
  2. VITANEURIN [THIAMINE HYDROCHLORIDE] [Concomitant]
     Dosage: UNK
  3. FLUTIFORM [Suspect]
     Active Substance: FLUTICASONE PROPIONATE\FORMOTEROL FUMARATE
     Indication: ASTHMA PROPHYLAXIS
     Dosage: UNK
     Route: 065
  4. PREDONINE [Concomitant]
     Active Substance: PREDNISOLONE
     Dosage: UNK
     Dates: start: 20180912, end: 20180929
  5. ALFACALCIDOL [Concomitant]
     Active Substance: ALFACALCIDOL
     Dosage: UNK
  6. AIMIX [Concomitant]
     Active Substance: AMLODIPINE BESYLATE\IRBESARTAN
     Dosage: UNK
  7. AMBROXOL HYDROCHLORIDE [Concomitant]
     Active Substance: AMBROXOL HYDROCHLORIDE
     Dosage: UNK
  8. BENLYSTA [Suspect]
     Active Substance: BELIMUMAB
     Dosage: 200 MG, QW
     Route: 058
     Dates: start: 20190129, end: 20190218
  9. MEPTIN AIR [Suspect]
     Active Substance: PROCATEROL HYDROCHLORIDE
     Indication: ASTHMA PROPHYLAXIS
     Dosage: UNK
     Route: 065
  10. XYZAL [Suspect]
     Active Substance: LEVOCETIRIZINE DIHYDROCHLORIDE
     Indication: ASTHMA PROPHYLAXIS
     Dosage: UNK UNK, QD
     Route: 048
  11. NEXIUM [Concomitant]
     Active Substance: ESOMEPRAZOLE MAGNESIUM
     Dosage: UNK
  12. HIRUDOID [Concomitant]
     Active Substance: GLYCOSAMINOGLYCANS
     Dosage: UNK
  13. URSO [Concomitant]
     Active Substance: URSODIOL
     Dosage: UNK
  14. BENLYSTA [Suspect]
     Active Substance: BELIMUMAB
     Dosage: 200 MG, QW
     Route: 058
     Dates: start: 20180912, end: 20180918
  15. ONETRAM [Concomitant]
     Active Substance: TRAMADOL HYDROCHLORIDE
     Dosage: UNK
  16. ASPARA POTASSIUM [Concomitant]
     Active Substance: POTASSIUM ASPARTATE
     Dosage: UNK
  17. TAKECAB [Concomitant]
     Active Substance: VONOPRAZAN FUMURATE
     Dosage: UNK
  18. BENLYSTA [Suspect]
     Active Substance: BELIMUMAB
     Indication: SYSTEMIC LUPUS ERYTHEMATOSUS
     Dosage: UNK UNK, QW
     Route: 041
     Dates: start: 20180904
  19. BENLYSTA [Suspect]
     Active Substance: BELIMUMAB
     Dosage: 200 MG, QW
     Route: 058
     Dates: start: 20181002, end: 20181120
  20. KIPRES [Concomitant]
     Active Substance: MONTELUKAST SODIUM
     Dosage: UNK
  21. MUCODYNE [Concomitant]
     Active Substance: CARBOCYSTEINE
     Dosage: UNK

REACTIONS (7)
  - Viral pharyngitis [Unknown]
  - Pharyngeal oedema [Unknown]
  - Pharyngeal stenosis [Unknown]
  - Upper respiratory tract inflammation [Unknown]
  - Pharyngitis [Unknown]
  - Nasal oedema [Unknown]
  - Asthma [Unknown]

NARRATIVE: CASE EVENT DATE: 20180918
